FAERS Safety Report 25837114 (Version 2)
Quarter: 2025Q4

REPORT INFORMATION
  Report Type: Spontaneous
  Country: EG (occurrence: EG)
  Receive Date: 20250923
  Receipt Date: 20251001
  Transmission Date: 20260118
  Serious: Yes (Hospitalization)
  Sender: NOVO NORDISK
  Company Number: EG-NOVOPROD-1524832

PATIENT
  Sex: Female
  Weight: 2.88 kg

DRUGS (6)
  1. ACTRAPID [Suspect]
     Active Substance: INSULIN HUMAN
     Dosage: 35 IU, QD (10+10+15 IU PER EACH MEAL.)
     Route: 064
  2. ACTRAPID [Suspect]
     Active Substance: INSULIN HUMAN
     Indication: Diabetes mellitus
     Dosage: 30 IU, QD (10 U BREAKFAST-20 U LUNCH-10 U DINNER)
     Route: 064
     Dates: start: 202411
  3. FERROTRON [FERROUS SULFATE] [Concomitant]
     Indication: Supplementation therapy
     Dosage: UNK, QD
     Route: 064
  4. THYROCIL [Concomitant]
     Indication: Hyperthyroidism
     Dosage: 6 DF QD
     Route: 064
  5. CAL-MAG [CALCIUM CARBONATE;MAGNESIUM HYDROXIDE] [Concomitant]
     Indication: Hypomagnesaemia
     Dosage: UNK, QD
     Route: 064
  6. BISOPROLOL FUMARATE [Concomitant]
     Active Substance: BISOPROLOL FUMARATE
     Indication: Tachycardia
     Dosage: UNK
     Route: 064
     Dates: end: 20250623

REACTIONS (2)
  - Neonatal hyperglycaemia [Recovered/Resolved]
  - Foetal exposure during pregnancy [Recovered/Resolved]

NARRATIVE: CASE EVENT DATE: 20241101
